FAERS Safety Report 7324166-9 (Version None)
Quarter: 2011Q1

REPORT INFORMATION
  Report Type: 
  Country: None (occurrence: None)
  Receive Date: 20110301
  Receipt Date: 20110224
  Transmission Date: 20110831
  Serious: Yes (Other)
  Sender: FDA-Public Use
  Company Number: FR-CEPHALON-2011000917

PATIENT
  Sex: Male

DRUGS (3)
  1. FENTANYL CITRATE [Suspect]
     Indication: CANCER PAIN
     Route: 002
     Dates: start: 20100501
  2. SOLUPRED [Concomitant]
  3. DURAGESIC-100 [Concomitant]
     Indication: CANCER PAIN
     Route: 062
     Dates: start: 20100501

REACTIONS (3)
  - DRUG DEPENDENCE [None]
  - DRUG PRESCRIBING ERROR [None]
  - INTENTIONAL DRUG MISUSE [None]
